FAERS Safety Report 11270804 (Version 2)
Quarter: 2017Q3

REPORT INFORMATION
  Report Type: Spontaneous
  Country: US (occurrence: US)
  Receive Date: 20150714
  Receipt Date: 20170926
  Transmission Date: 20171127
  Serious: Yes (Life-Threatening, Hospitalization, Other)
  Sender: FDA-Public Use
  Company Number: US-FRI-1000078099

PATIENT
  Age: 6 Decade
  Sex: Female
  Weight: 115.7 kg

DRUGS (19)
  1. CEFTAROLINE FOSAMIL UNK [Suspect]
     Active Substance: CEFTAROLINE FOSAMIL
     Indication: NECROTISING FASCIITIS
     Dosage: 600 MG, Q12H
     Route: 065
  2. CLINDAMYCIN. [Suspect]
     Active Substance: CLINDAMYCIN
     Indication: ABSCESS
  3. CEFTAROLINE FOSAMIL UNK [Suspect]
     Active Substance: CEFTAROLINE FOSAMIL
     Indication: ABSCESS
  4. TERBINAFINE. [Concomitant]
     Active Substance: TERBINAFINE
     Indication: PRODUCT USED FOR UNKNOWN INDICATION
     Dosage: UNK
     Route: 065
  5. ACETAMINOPHEN. [Concomitant]
     Active Substance: ACETAMINOPHEN
     Indication: PRODUCT USED FOR UNKNOWN INDICATION
     Dosage: UNK, PRN
     Route: 065
  6. DIGOXIN. [Concomitant]
     Active Substance: DIGOXIN
     Indication: PRODUCT USED FOR UNKNOWN INDICATION
     Dosage: UNK
     Route: 065
  7. ONDANSETRON [Concomitant]
     Active Substance: ONDANSETRON
     Indication: PRODUCT USED FOR UNKNOWN INDICATION
     Dosage: UNK
     Route: 065
  8. WARFARIN [Concomitant]
     Active Substance: WARFARIN
     Indication: PRODUCT USED FOR UNKNOWN INDICATION
     Dosage: UNK
     Route: 065
  9. CLONIDINE. [Concomitant]
     Active Substance: CLONIDINE
     Indication: PRODUCT USED FOR UNKNOWN INDICATION
     Dosage: UNK
     Route: 065
  10. CEFTAROLINE FOSAMIL UNK [Suspect]
     Active Substance: CEFTAROLINE FOSAMIL
     Indication: CELLULITIS
  11. ZOLPIDEM [Concomitant]
     Active Substance: ZOLPIDEM\ZOLPIDEM TARTRATE
     Indication: PRODUCT USED FOR UNKNOWN INDICATION
     Dosage: UNK
     Route: 065
  12. FUROSEMIDE. [Concomitant]
     Active Substance: FUROSEMIDE
     Indication: PRODUCT USED FOR UNKNOWN INDICATION
     Dosage: UNK
     Route: 065
  13. INSULIN [Concomitant]
     Active Substance: INSULIN NOS
     Indication: PRODUCT USED FOR UNKNOWN INDICATION
     Dosage: UNK
     Route: 065
  14. METOPROLOL. [Concomitant]
     Active Substance: METOPROLOL
     Indication: PRODUCT USED FOR UNKNOWN INDICATION
     Dosage: UNK
     Route: 065
  15. TRIMETHOPRIM/SULFAMETHOXAZOLE [Concomitant]
     Active Substance: SULFAMETHOXAZOLE\TRIMETHOPRIM
     Indication: PRODUCT USED FOR UNKNOWN INDICATION
     Dosage: UNK
     Route: 048
  16. CLINDAMYCIN. [Suspect]
     Active Substance: CLINDAMYCIN
     Indication: CELLULITIS
     Dosage: 900 MG, Q8HR
     Route: 065
  17. CLINDAMYCIN. [Suspect]
     Active Substance: CLINDAMYCIN
     Indication: NECROTISING FASCIITIS
  18. NITROGLYCERIN. [Concomitant]
     Active Substance: NITROGLYCERIN
     Indication: PRODUCT USED FOR UNKNOWN INDICATION
     Dosage: UNK
     Route: 065
  19. SIMVASTATIN. [Concomitant]
     Active Substance: SIMVASTATIN
     Indication: PRODUCT USED FOR UNKNOWN INDICATION
     Dosage: UNK
     Route: 065

REACTIONS (3)
  - Agranulocytosis [Recovered/Resolved]
  - Abdominal discomfort [Unknown]
  - Incorrect drug administration duration [Unknown]
